FAERS Safety Report 7089818-7 (Version None)
Quarter: 2010Q4

REPORT INFORMATION
  Report Type: 
  Country: None (occurrence: None)
  Receive Date: 20101108
  Receipt Date: 20101028
  Transmission Date: 20110411
  Serious: Yes (Hospitalization, Other)
  Sender: FDA-Public Use
  Company Number: JP-PFIZER INC-2010124967

PATIENT
  Sex: Male
  Weight: 62 kg

DRUGS (3)
  1. SALAZOPYRIN [Suspect]
     Indication: COLITIS ULCERATIVE
     Dosage: UNK
     Route: 048
     Dates: start: 20100916, end: 20100924
  2. MESALAZINE [Suspect]
     Indication: COLITIS ULCERATIVE
     Dosage: UNK
     Route: 054
     Dates: start: 20100916, end: 20100924
  3. LOXOPROFEN [Suspect]

REACTIONS (13)
  - BACK PAIN [None]
  - BLOOD IMMUNOGLOBULIN E INCREASED [None]
  - BLOOD PRESSURE INCREASED [None]
  - BODY TEMPERATURE DECREASED [None]
  - DRUG HYPERSENSITIVITY [None]
  - EOSINOPHILIA [None]
  - FEELING HOT [None]
  - GENERALISED ERYTHEMA [None]
  - HEADACHE [None]
  - HEART RATE INCREASED [None]
  - PRURITUS [None]
  - PYREXIA [None]
  - RASH [None]
